FAERS Safety Report 24422575 (Version 1)
Quarter: 2024Q4

REPORT INFORMATION
  Report Type: Spontaneous
  Country: JP (occurrence: JP)
  Receive Date: 20241010
  Receipt Date: 20241010
  Transmission Date: 20250115
  Serious: Yes (Death, Life-Threatening, Hospitalization)
  Sender: STRIDES
  Company Number: None

PATIENT
  Age: 86 Year
  Sex: Female

DRUGS (1)
  1. PREDNISOLONE [Suspect]
     Active Substance: PREDNISOLONE
     Indication: Rheumatoid arthritis
     Dosage: 6 MILLIGRAM, QD
     Route: 065

REACTIONS (5)
  - Death [Fatal]
  - Cardiac failure [Unknown]
  - Pneumonia [Unknown]
  - Aspergillus infection [Recovered/Resolved]
  - Postoperative wound infection [Recovered/Resolved]
